FAERS Safety Report 4465961-3 (Version None)
Quarter: 2004Q3

REPORT INFORMATION
  Report Type: 
  Country: None (occurrence: None)
  Receive Date: 20040930
  Receipt Date: 20040916
  Transmission Date: 20050211
  Serious: Yes (Hospitalization)
  Sender: FDA-Public Use
  Company Number: 2004231579FR

PATIENT
  Age: 35 Year
  Sex: Male

DRUGS (4)
  1. DOXORUBICIN HCL [Suspect]
     Indication: HODGKIN'S DISEASE NODULAR SCLEROSIS STAGE UNSPECIFIED
     Dosage: 50 MG (25 MG/M2), CYCLIC, IV
     Route: 042
     Dates: start: 20040521, end: 20040604
  2. BLEOMYCIN SULFATE [Suspect]
     Dosage: 20 MG (10 MG/M2), CYCLIC, IV
     Route: 042
     Dates: start: 20040521, end: 20040604
  3. DETICENE (DACARBAZIDE) [Suspect]
     Dosage: 800 MG (375 MG/M2), CYCLIC, IV
     Route: 042
     Dates: start: 20040521, end: 20040604
  4. VELBAN [Suspect]
     Dosage: 12 MG (6 MG/M2), CYCLIC, IV
     Route: 042
     Dates: start: 20040521, end: 20040604

REACTIONS (4)
  - HYPERTHERMIA [None]
  - IATROGENIC INJURY [None]
  - INTERSTITIAL LUNG DISEASE [None]
  - RESPIRATORY DISTRESS [None]
